FAERS Safety Report 4755249-5 (Version None)
Quarter: 2005Q3

REPORT INFORMATION
  Report Type: 
  Country: None (occurrence: None)
  Receive Date: 20050826
  Receipt Date: 20041019
  Transmission Date: 20060218
  Serious: Yes (Life-Threatening, Hospitalization, Other)
  Sender: FDA-Public Use
  Company Number: KII-2001-0013638

PATIENT
  Age: 45 Year
  Sex: Female

DRUGS (2)
  1. OXYCONTIN [Suspect]
     Dosage: 20 MG
  2. DURAGESIC-100 [Suspect]
     Dosage: 50 MCG/HR, INTRAVENOUS
     Route: 042

REACTIONS (1)
  - DRUG ABUSER [None]
